FAERS Safety Report 4949253-1 (Version None)
Quarter: 2006Q1

REPORT INFORMATION
  Report Type: 
  Country: None (occurrence: None)
  Receive Date: 20060321
  Receipt Date: 20060309
  Transmission Date: 20060701
  Serious: Yes (Hospitalization, Other)
  Sender: FDA-Public Use
  Company Number: PHBS2006JP03740

PATIENT
  Age: 34 Year
  Sex: Female

DRUGS (6)
  1. CYCLOSPORINE [Suspect]
     Indication: STEM CELL TRANSPLANT
     Route: 065
  2. METHOTREXATE [Concomitant]
     Dosage: SHORT-TERM
  3. CYCLOPHOSPHAMIDE [Concomitant]
  4. BUSULFAN [Concomitant]
  5. METHYLPREDNISOLONE [Concomitant]
     Indication: GRAFT VERSUS HOST DISEASE
     Dosage: 1 MG/KG/DAY
  6. GANCICLOVIR [Concomitant]
     Indication: CYTOMEGALOVIRUS COLITIS

REACTIONS (12)
  - ABDOMINAL PAIN [None]
  - AREFLEXIA [None]
  - BLOOD IMMUNOGLOBULIN G INCREASED [None]
  - CYTOMEGALOVIRUS ANTIGEN POSITIVE [None]
  - CYTOMEGALOVIRUS COLITIS [None]
  - DIARRHOEA [None]
  - ERYTHEMA [None]
  - GRAFT VERSUS HOST DISEASE [None]
  - GUILLAIN-BARRE SYNDROME [None]
  - MUSCULAR WEAKNESS [None]
  - QUADRIPLEGIA [None]
  - SPINAL MYELOGRAM ABNORMAL [None]
